FAERS Safety Report 9711763 (Version 1)
Quarter: 2013Q4

REPORT INFORMATION
  Report Type: Spontaneous
  Country: US (occurrence: US)
  Receive Date: 20131126
  Receipt Date: 20131126
  Transmission Date: 20140711
  Serious: No
  Sender: FDA-Public Use
  Company Number: US-BRISTOL-MYERS SQUIBB COMPANY-18808295

PATIENT
  Age: 52 Year
  Sex: Female
  Weight: 97.5 kg

DRUGS (7)
  1. BYDUREON [Suspect]
  2. METFORMIN [Concomitant]
  3. JANUVIA [Concomitant]
     Route: 048
  4. LOPRESSOR [Concomitant]
  5. SERTRALINE [Concomitant]
  6. EFFEXOR [Concomitant]
  7. AMITRIPTYLINE [Concomitant]

REACTIONS (3)
  - Injection site pruritus [Unknown]
  - Injection site mass [Unknown]
  - Erythema [Unknown]
